FAERS Safety Report 4266124-7 (Version None)
Quarter: 2004Q1

REPORT INFORMATION
  Report Type: 
  Country: None (occurrence: None)
  Receive Date: 20040106
  Receipt Date: 20031225
  Transmission Date: 20041129
  Serious: Yes (Death, Hospitalization)
  Sender: FDA-Public Use
  Company Number: JP-JNJFOC-20031102954

PATIENT
  Age: 25 Year
  Sex: Female
  Weight: 120 kg

DRUGS (6)
  1. RISPERDAL [Suspect]
     Indication: SCHIZOPHRENIA
     Dosage: 2 MG, IN 1 DAY, ORAL
     Route: 048
     Dates: start: 20010801, end: 20031103
  2. OFLOXACIN [Concomitant]
  3. SUPLATAST TOSILATE (SUPLATAST TOSILATE) [Concomitant]
  4. URSODEXOYCHOLIC ACID (URSODEOXYCHOLIC ACID) [Concomitant]
  5. THEOPHYLLINE [Concomitant]
  6. TULOBUTEROL (TULOBUTEROL) [Concomitant]

REACTIONS (20)
  - ALANINE AMINOTRANSFERASE INCREASED [None]
  - APNOEA [None]
  - ARRHYTHMIA [None]
  - ASPARTATE AMINOTRANSFERASE INCREASED [None]
  - BLOOD AMYLASE INCREASED [None]
  - BLOOD CREATINE PHOSPHOKINASE INCREASED [None]
  - BLOOD POTASSIUM INCREASED [None]
  - BLOOD PRESSURE DECREASED [None]
  - BLOOD SODIUM DECREASED [None]
  - BLOOD SODIUM INCREASED [None]
  - BLOOD UREA INCREASED [None]
  - BRAIN STEM AUDITORY EVOKED RESPONSE ABNORMAL [None]
  - CARDIO-RESPIRATORY ARREST [None]
  - HYPOXIC ENCEPHALOPATHY [None]
  - MYDRIASIS [None]
  - PUPILLARY REFLEX IMPAIRED [None]
  - SHOCK [None]
  - SLEEP APNOEA SYNDROME [None]
  - SNORING [None]
  - WHITE BLOOD CELL COUNT INCREASED [None]
